FAERS Safety Report 7630292-7 (Version None)
Quarter: 2011Q3

REPORT INFORMATION
  Report Type: 
  Country: None (occurrence: None)
  Receive Date: 20110722
  Receipt Date: 20110715
  Transmission Date: 20111222
  Serious: Yes (Hospitalization)
  Sender: FDA-Public Use
  Company Number: PHHY2011DK64199

PATIENT
  Age: 62 Year
  Sex: Female

DRUGS (9)
  1. ASPIRIN [Suspect]
     Dosage: 75 MG/DAY
     Route: 048
     Dates: start: 20070712
  2. HYDROXYUREA [Suspect]
     Dosage: 500 MG, BID
     Dates: start: 20070731
  3. ASPIRIN [Suspect]
     Dosage: 75 MG, EVERY OTHER DAY
     Dates: start: 20071213, end: 20110407
  4. NSAID'S [Concomitant]
     Dosage: UNK UKN, UNK
  5. HYDROXYUREA [Suspect]
     Dosage: 500 MG, UNK
     Route: 048
     Dates: start: 20070712
  6. ANTICOAGULANTS [Concomitant]
     Dosage: UNK UKN, UNK
  7. STEROIDS NOS [Concomitant]
     Dosage: UNK UKN, UNK
  8. HYDROXYUREA [Suspect]
     Dosage: 1000 MG ALTERNATE DAYS
     Dates: start: 20070823, end: 20110407
  9. HYDROXYUREA [Suspect]
     Dosage: 1500 MG, ALTERNATE DAYS
     Dates: start: 20070823, end: 20110407

REACTIONS (3)
  - DIFFUSE LARGE B-CELL LYMPHOMA [None]
  - GASTROINTESTINAL HAEMORRHAGE [None]
  - HAEMATEMESIS [None]
